FAERS Safety Report 6493026-8 (Version None)
Quarter: 2009Q4

REPORT INFORMATION
  Report Type: 
  Country: None (occurrence: None)
  Receive Date: 20091214
  Receipt Date: 20091204
  Transmission Date: 20100525
  Serious: Yes (Death)
  Sender: FDA-Public Use
  Company Number: CH-ROCHE-665850

PATIENT
  Sex: Male
  Weight: 70 kg

DRUGS (3)
  1. AVASTIN [Suspect]
     Indication: RECTAL CANCER METASTATIC
     Dosage: FORM: INFUSION; FREQUENCY: SINGLE
     Route: 042
     Dates: start: 20091013
  2. XELODA [Suspect]
     Indication: RECTAL CANCER METASTATIC
     Route: 048
     Dates: start: 20091013
  3. OXALIPLATIN [Concomitant]
     Indication: RECTAL CANCER METASTATIC
     Dates: start: 20091013

REACTIONS (1)
  - ARRHYTHMIA [None]
